FAERS Safety Report 6105736-2 (Version None)
Quarter: 2009Q1

REPORT INFORMATION
  Report Type: 
  Country: None (occurrence: None)
  Receive Date: 20090304
  Receipt Date: 20090304
  Transmission Date: 20090719
  Serious: Yes (Other)
  Sender: FDA-Public Use
  Company Number: None

PATIENT
  Age: 27 Year
  Sex: Female
  Weight: 122 kg

DRUGS (1)
  1. CIBALENAA (NCH) (CAFFEINE CITRATE, ACETYLSALICYCLIC ACID, ACETAMINOPHE [Suspect]
     Indication: DERMATITIS
     Dosage: 4 TABLETS DAILY ORAL
     Route: 048
     Dates: start: 20080101, end: 20090212

REACTIONS (2)
  - BLOOD PRESSURE INCREASED [None]
  - EPISTAXIS [None]
